FAERS Safety Report 4724561-8 (Version None)
Quarter: 2005Q3

REPORT INFORMATION
  Report Type: 
  Country: None (occurrence: None)
  Receive Date: 20050721
  Receipt Date: 20050711
  Transmission Date: 20060218
  Serious: Yes (Other)
  Sender: FDA-Public Use
  Company Number: 215240

PATIENT
  Age: 77 Year
  Sex: Female
  Weight: 42.0031 kg

DRUGS (11)
  1. RITUXAN [Suspect]
     Indication: NON-HODGKIN'S LYMPHOMA
     Dosage: 500 MG IV DRIP
     Route: 042
     Dates: start: 20040414, end: 20040913
  2. CYCLOPHOSPHAMIDE [Concomitant]
  3. VINCRISTINE [Concomitant]
  4. PREDNISONE [Concomitant]
  5. VENA (DIPHENHYDRAMINE HYDROCHLORIDE) [Concomitant]
  6. CALONAL (ACETAMINOPHEN) [Concomitant]
  7. MAGNESIUM OXIDE (MAGNESIUM OXIDE) [Concomitant]
  8. MUCOSTA (REBAMIPIDE) [Concomitant]
  9. LECICARBON (SODIUM PHOSPHATE, MONOBASIC, SODIUM BICARBONATE, LECITHIN) [Concomitant]
  10. AMOBAN (ZOPICLONE) [Concomitant]
  11. DOXORUBICIN [Concomitant]

REACTIONS (7)
  - ANAEMIA [None]
  - BLOOD ALKALINE PHOSPHATASE INCREASED [None]
  - BLOOD LACTATE DEHYDROGENASE INCREASED [None]
  - BLOOD PRESSURE ABNORMAL [None]
  - GRANULOCYTE COUNT DECREASED [None]
  - PRURITUS [None]
  - WHITE BLOOD CELL COUNT DECREASED [None]
